FAERS Safety Report 6253336-6 (Version None)
Quarter: 2009Q3

REPORT INFORMATION
  Report Type: 
  Country: None (occurrence: None)
  Receive Date: 20090701
  Receipt Date: 20090618
  Transmission Date: 20100115
  Serious: Yes (Other)
  Sender: FDA-Public Use
  Company Number: PHHY2009BR24541

PATIENT
  Age: 67 Year
  Sex: Female
  Weight: 80 kg

DRUGS (6)
  1. DIOVAN [Suspect]
     Indication: HYPERTENSION
     Dosage: 1 TABLET (80 MG) DAILY
     Route: 048
     Dates: start: 20050101
  2. DIOVAN [Suspect]
     Dosage: HALF TABLET (160 MG) DAILY
     Route: 048
  3. ALPRAZOLAM [Concomitant]
     Indication: INSOMNIA
     Dosage: 4 TABLETS(0,25MG:) AT NIGHT
     Route: 048
  4. NATRILIX [Concomitant]
     Indication: HYPERTENSION
     Dosage: 1 TABLET DAILY ON MONDAYS, WEDNESDAYS AND FRIDAYS
     Route: 048
  5. PURAN T4 [Concomitant]
     Indication: AUTOIMMUNE THYROIDITIS
     Dosage: 1 TABLET (25 MG)
     Route: 048
     Dates: start: 20020101
  6. TAMARINE [Concomitant]
     Indication: BOWEL MOVEMENT IRREGULARITY
     Dosage: 1 DESERT SPOON AT NIGHT
     Route: 048
     Dates: start: 20050101

REACTIONS (9)
  - ASTHMA [None]
  - BREAST CANCER [None]
  - DAYDREAMING [None]
  - DYSPNOEA [None]
  - LUNG INFECTION [None]
  - MEMORY IMPAIRMENT [None]
  - METASTASES TO LYMPH NODES [None]
  - OEDEMA PERIPHERAL [None]
  - SURGERY [None]
